FAERS Safety Report 6983282-1 (Version None)
Quarter: 2010Q3

REPORT INFORMATION
  Report Type: 
  Country: None (occurrence: None)
  Receive Date: 20100914
  Receipt Date: 20100721
  Transmission Date: 20110219
  Serious: No
  Sender: FDA-Public Use
  Company Number: US-PFIZER INC-2010092081

PATIENT
  Sex: Female
  Weight: 65.76 kg

DRUGS (6)
  1. LYRICA [Suspect]
     Indication: NEUROPATHY PERIPHERAL
     Dosage: 75 MG, 2X/DAY
     Route: 048
     Dates: start: 20100522, end: 20100712
  2. LYRICA [Suspect]
     Indication: NERVE INJURY
     Dosage: 50 MG, 1X/DAY
     Dates: start: 20100712, end: 20100717
  3. LYRICA [Suspect]
     Indication: NEURALGIA
  4. BENAZEPRIL [Concomitant]
     Indication: HYPERTENSION
     Dosage: 20 MG, DAILY
  5. METOPROLOL [Concomitant]
     Indication: HYPERTENSION
     Dosage: 100 MG, DAILY
  6. XANAX [Concomitant]
     Indication: ANXIETY
     Dosage: UNK, AS NEEDED
     Route: 048
     Dates: start: 20060101

REACTIONS (8)
  - DRUG INTOLERANCE [None]
  - FEELING ABNORMAL [None]
  - GAIT DISTURBANCE [None]
  - HYPOTENSION [None]
  - MALAISE [None]
  - MUSCULAR WEAKNESS [None]
  - PAIN [None]
  - VISION BLURRED [None]
